FAERS Safety Report 17582135 (Version 4)
Quarter: 2020Q3

REPORT INFORMATION
  Report Type: Report from Study
  Country: US (occurrence: US)
  Receive Date: 20200325
  Receipt Date: 20200918
  Transmission Date: 20201102
  Serious: No
  Sender: FDA-Public Use
  Company Number: US-SHIRE-US202011059

PATIENT
  Age: 73 Year
  Sex: Female

DRUGS (8)
  1. GATTEX [Suspect]
     Active Substance: TEDUGLUTIDE\WATER
     Indication: SHORT-BOWEL SYNDROME
     Dosage: 0.3400 (UNIT UNKNOWN), 1X/DAY:QD
     Route: 058
     Dates: start: 20190826
  2. GATTEX [Suspect]
     Active Substance: TEDUGLUTIDE\WATER
     Dosage: 0.3400 (UNIT UNKNOWN), 1X/DAY:QD
     Route: 058
     Dates: start: 20190816
  3. GATTEX [Suspect]
     Active Substance: TEDUGLUTIDE\WATER
     Indication: SHORT-BOWEL SYNDROME
     Dosage: 0.3400 (UNIT UNKNOWN), 1X/DAY:QD
     Route: 058
     Dates: start: 20190826
  4. GATTEX [Suspect]
     Active Substance: TEDUGLUTIDE\WATER
     Dosage: 0.3400 (UNIT UNKNOWN), 1X/DAY:QD
     Route: 058
     Dates: start: 20190816
  5. GATTEX [Suspect]
     Active Substance: TEDUGLUTIDE\WATER
     Dosage: 0.3400 (UNIT UNKNOWN), 1X/DAY:QD
     Route: 058
     Dates: start: 20190816
  6. GATTEX [Suspect]
     Active Substance: TEDUGLUTIDE\WATER
     Indication: SHORT-BOWEL SYNDROME
     Dosage: 0.3400 (UNIT UNKNOWN), 1X/DAY:QD
     Route: 058
     Dates: start: 20190826
  7. GATTEX [Suspect]
     Active Substance: TEDUGLUTIDE\WATER
     Indication: SHORT-BOWEL SYNDROME
     Dosage: 0.3400 (UNIT UNKNOWN), 1X/DAY:QD
     Route: 058
     Dates: start: 20190826
  8. GATTEX [Suspect]
     Active Substance: TEDUGLUTIDE\WATER
     Dosage: 0.3400 (UNIT UNKNOWN), 1X/DAY:QD
     Route: 058
     Dates: start: 20190816

REACTIONS (5)
  - Product container issue [Unknown]
  - Contusion [Recovering/Resolving]
  - Pyrexia [Not Recovered/Not Resolved]
  - Influenza like illness [Not Recovered/Not Resolved]
  - Upper-airway cough syndrome [Not Recovered/Not Resolved]

NARRATIVE: CASE EVENT DATE: 20200323
